FAERS Safety Report 10841717 (Version 1)
Quarter: 2015Q1

REPORT INFORMATION
  Report Type: Report from Study
  Country: US (occurrence: US)
  Receive Date: 20150220
  Receipt Date: 20150220
  Transmission Date: 20150721
  Serious: No
  Sender: FDA-Public Use
  Company Number: US-ABBVIE-14P-163-1269563-00

PATIENT
  Age: 42 Year
  Sex: Female

DRUGS (8)
  1. AMITRIPTYLINE [Concomitant]
     Active Substance: AMITRIPTYLINE
  2. METHADONE [Concomitant]
     Active Substance: METHADONE HYDROCHLORIDE
     Indication: PRODUCT USED FOR UNKNOWN INDICATION
     Dosage: 1-2 TIMES A DAY
  3. AMITRIPTYLINE [Concomitant]
     Active Substance: AMITRIPTYLINE
     Indication: PAIN
  4. METHOTREXATE [Concomitant]
     Active Substance: METHOTREXATE
     Indication: VITAMIN SUPPLEMENTATION
  5. HUMIRA [Suspect]
     Active Substance: ADALIMUMAB
     Indication: PSORIASIS
     Dates: start: 20120216
  6. LYRICA [Concomitant]
     Active Substance: PREGABALIN
     Indication: PAIN
  7. HYDROCODONE [Concomitant]
     Active Substance: HYDROCODONE
     Indication: PAIN
     Dosage: 10/325MG, 4 TIMES DAILY
  8. METHOTREXATE [Concomitant]
     Active Substance: METHOTREXATE
     Dates: start: 201405

REACTIONS (2)
  - Nasopharyngitis [Not Recovered/Not Resolved]
  - Psoriasis [Unknown]

NARRATIVE: CASE EVENT DATE: 201204
